FAERS Safety Report 12709651 (Version 1)
Quarter: 2016Q3

REPORT INFORMATION
  Report Type: Spontaneous
  Country: US (occurrence: US)
  Receive Date: 20160902
  Receipt Date: 20160902
  Transmission Date: 20161109
  Serious: Yes (Death)
  Sender: FDA-Public Use
  Company Number: US-JNJFOC-20160827487

PATIENT
  Age: 87 Year
  Sex: Female

DRUGS (1)
  1. STELARA [Suspect]
     Active Substance: USTEKINUMAB
     Indication: PSORIASIS
     Route: 058
     Dates: start: 20150623

REACTIONS (2)
  - Hip arthroplasty [Fatal]
  - Procedural complication [Fatal]

NARRATIVE: CASE EVENT DATE: 20160824
